FAERS Safety Report 16533767 (Version 3)
Quarter: 2019Q3

REPORT INFORMATION
  Report Type: Spontaneous
  Country: NO (occurrence: NO)
  Receive Date: 20190705
  Receipt Date: 20190807
  Transmission Date: 20191004
  Serious: Yes (Hospitalization)
  Sender: FDA-Public Use
  Company Number: NO-ALLERGAN-1925405US

PATIENT
  Sex: Female

DRUGS (3)
  1. JUVEDERM [Concomitant]
     Active Substance: HYALURONIC ACID
     Indication: SKIN WRINKLING
     Dosage: 3 ML, SINGLE
     Route: 065
     Dates: start: 20190615, end: 20190615
  2. JUVEDERM [Concomitant]
     Active Substance: HYALURONIC ACID
     Dosage: 1.5 ML, SINGLE
     Route: 065
     Dates: start: 20190615, end: 20190615
  3. VISTABEL [Suspect]
     Active Substance: BOTULINUM TOXIN TYPE A
     Indication: SKIN WRINKLING
     Dosage: 20 UNITS, SINGLE
     Route: 065
     Dates: start: 20190615, end: 20190615

REACTIONS (7)
  - Pallor [Recovered/Resolved]
  - Muscle spasms [Recovered/Resolved]
  - Anaphylactic reaction [Recovered/Resolved]
  - Stress [Recovered/Resolved]
  - Dysarthria [Recovered/Resolved]
  - Syncope [Recovered/Resolved]
  - Mydriasis [Recovered/Resolved]

NARRATIVE: CASE EVENT DATE: 20190615
